FAERS Safety Report 8231002-5 (Version None)
Quarter: 2012Q1

REPORT INFORMATION
  Report Type: 
  Country: None (occurrence: None)
  Receive Date: 20120323
  Receipt Date: 20120313
  Transmission Date: 20120608
  Serious: Yes (Life-Threatening, Other)
  Sender: FDA-Public Use
  Company Number: JP-TEVA-2011001854

PATIENT
  Sex: Female
  Weight: 44.4 kg

DRUGS (11)
  1. BENDAMUSTINE [Suspect]
     Route: 042
     Dates: start: 20110208, end: 20110209
  2. BENDAMUSTINE [Suspect]
     Route: 042
     Dates: start: 20110628
  3. BENDAMUSTINE [Suspect]
     Route: 042
     Dates: start: 20110426, end: 20110427
  4. TEPRENONE [Concomitant]
     Dates: start: 20110111
  5. BENDAMUSTINE [Suspect]
     Route: 042
     Dates: start: 20110301, end: 20110302
  6. ALLOPURINOL [Concomitant]
     Dates: start: 20110111
  7. VIDARABINE [Concomitant]
     Dates: start: 20110628, end: 20110629
  8. BENDAMUSTINE [Suspect]
     Indication: B-CELL LYMPHOMA
     Route: 042
     Dates: start: 20110111, end: 20110302
  9. SULFAMETHOXAZOLE + TRIMETHOPRIM [Concomitant]
     Dates: start: 20110111
  10. BROTIZOLAM [Concomitant]
     Dates: start: 20110111
  11. BENDAMUSTINE [Suspect]
     Route: 042
     Dates: start: 20110405, end: 20110406

REACTIONS (6)
  - PLATELET COUNT DECREASED [None]
  - GRANULOCYTE COUNT DECREASED [None]
  - HAEMOLYTIC ANAEMIA [None]
  - PHLEBITIS [None]
  - LYMPHOCYTE COUNT DECREASED [None]
  - LYMPHOPENIA [None]
